FAERS Safety Report 19014491 (Version 1)
Quarter: 2021Q1

REPORT INFORMATION
  Report Type: Spontaneous
  Country: US (occurrence: US)
  Receive Date: 20210316
  Receipt Date: 20210316
  Transmission Date: 20210420
  Serious: Yes (Other)
  Sender: FDA-Public Use
  Company Number: US-UPSHER-SMITH LABORATORIES, LLC-2021USL00254

PATIENT
  Sex: Male

DRUGS (2)
  1. AMIODARONE HYDROCHLORIDE. [Suspect]
     Active Substance: AMIODARONE HYDROCHLORIDE
     Indication: ATRIAL FIBRILLATION
     Dosage: UNK
     Route: 048
     Dates: start: 201405
  2. UNSPECIFIED MEDICATIONS [Suspect]
     Active Substance: UNSPECIFIED INGREDIENT
     Indication: LUNG DISORDER

REACTIONS (9)
  - Eye pain [Unknown]
  - Photophobia [Unknown]
  - Vitreous floaters [Unknown]
  - Off label use [Unknown]
  - Blindness [Unknown]
  - Unevaluable event [Unknown]
  - Lung disorder [Unknown]
  - Deposit eye [Unknown]
  - Coordination abnormal [Unknown]

NARRATIVE: CASE EVENT DATE: 201405
